FAERS Safety Report 5167588-7 (Version None)
Quarter: 2006Q4

REPORT INFORMATION
  Report Type: 
  Country: None (occurrence: None)
  Receive Date: 20060918
  Receipt Date: 20060420
  Transmission Date: 20070319
  Serious: Yes (Other)
  Sender: FDA-Public Use
  Company Number: NSADSS2002014272

PATIENT
  Age: 55 Year
  Sex: Female
  Weight: 107.9561 kg

DRUGS (16)
  1. TOPAMAX [Suspect]
     Indication: ANXIETY
     Dosage: SEE IMAGE
     Route: 048
     Dates: end: 20020415
  2. TOPAMAX [Suspect]
     Indication: EPILEPSY
     Dosage: SEE IMAGE
     Route: 048
     Dates: end: 20020415
  3. TOPAMAX [Suspect]
     Indication: WEIGHT DECREASED
     Dosage: SEE IMAGE
     Route: 048
     Dates: end: 20020415
  4. TOPAMAX [Suspect]
     Indication: ANXIETY
     Dosage: SEE IMAGE
     Route: 048
     Dates: start: 20020101
  5. TOPAMAX [Suspect]
     Indication: EPILEPSY
     Dosage: SEE IMAGE
     Route: 048
     Dates: start: 20020101
  6. TOPAMAX [Suspect]
     Indication: WEIGHT DECREASED
     Dosage: SEE IMAGE
     Route: 048
     Dates: start: 20020101
  7. TOPAMAX [Suspect]
     Indication: ANXIETY
     Dosage: SEE IMAGE
     Route: 048
     Dates: start: 20020102
  8. TOPAMAX [Suspect]
     Indication: EPILEPSY
     Dosage: SEE IMAGE
     Route: 048
     Dates: start: 20020102
  9. TOPAMAX [Suspect]
     Indication: WEIGHT DECREASED
     Dosage: SEE IMAGE
     Route: 048
     Dates: start: 20020102
  10. TOPAMAX [Suspect]
     Indication: ANXIETY
     Dosage: SEE IMAGE
     Route: 048
     Dates: start: 20020201
  11. TOPAMAX [Suspect]
     Indication: EPILEPSY
     Dosage: SEE IMAGE
     Route: 048
     Dates: start: 20020201
  12. TOPAMAX [Suspect]
     Indication: WEIGHT DECREASED
     Dosage: SEE IMAGE
     Route: 048
     Dates: start: 20020201
  13. KLONOPIN [Concomitant]
  14. PHENOBARB (PHENOBARBITAL SODIUM) [Concomitant]
  15. HORMONES (ALL OTHER THERAPEUTIC PRODUCTS) [Concomitant]
  16. NEURONTIN [Concomitant]

REACTIONS (8)
  - ALTERED VISUAL DEPTH PERCEPTION [None]
  - ANXIETY DISORDER [None]
  - BURNOUT SYNDROME [None]
  - DIPLOPIA [None]
  - DISTURBANCE IN ATTENTION [None]
  - EXTRAOCULAR MUSCLE PARESIS [None]
  - EYELID PTOSIS [None]
  - VISION BLURRED [None]
